FAERS Safety Report 8230850-5 (Version None)
Quarter: 2012Q1

REPORT INFORMATION
  Report Type: 
  Country: None (occurrence: None)
  Receive Date: 20120323
  Receipt Date: 20120315
  Transmission Date: 20120608
  Serious: Yes (Other)
  Sender: FDA-Public Use
  Company Number: JP-B.I. PHARMACEUTICALS,INC./RIDGEFIELD-2012-BP-04975BP

PATIENT

DRUGS (1)
  1. BLIND (TIOTROPIUM BROMIDE) [Suspect]
     Indication: ASTHMA
     Route: 055

REACTIONS (1)
  - DIZZINESS [None]
